FAERS Safety Report 9527810 (Version 1)
Quarter: 2013Q3

REPORT INFORMATION
  Report Type: Report from Study
  Country: FR (occurrence: FR)
  Receive Date: 20130917
  Receipt Date: 20130917
  Transmission Date: 20140515
  Serious: Yes (Other)
  Sender: FDA-Public Use
  Company Number: FR-BAYER-2013-110725

PATIENT
  Age: 44 Year
  Sex: Female

DRUGS (1)
  1. BETAFERON [Suspect]
     Dosage: 1 ML, UNK
     Dates: start: 20130124

REACTIONS (20)
  - Influenza like illness [None]
  - Tremor [None]
  - Pyrexia [None]
  - Myalgia [None]
  - Headache [None]
  - Chest pain [None]
  - Chest discomfort [None]
  - Dyspnoea [None]
  - Musculoskeletal stiffness [None]
  - Local swelling [None]
  - Pain [None]
  - Malaise [None]
  - Back pain [None]
  - Fatigue [None]
  - Skin reaction [None]
  - Erythema [None]
  - Skin swelling [None]
  - Vertigo [None]
  - Hot flush [None]
  - Intervertebral disc compression [None]
